FAERS Safety Report 6256048-8 (Version None)
Quarter: 2009Q2

REPORT INFORMATION
  Report Type: 
  Country: None (occurrence: None)
  Receive Date: 20090630
  Receipt Date: 20090630
  Transmission Date: 20091009
  Serious: Yes (Life-Threatening)
  Sender: FDA-Public Use
  Company Number: None

PATIENT
  Age: 43 Year
  Sex: Male
  Weight: 99.3377 kg

DRUGS (1)
  1. TREN EXTREME 30 MG AMERCIAN CELLULAR LABORATORY [Suspect]
     Indication: MUSCLE BUILDING THERAPY
     Dosage: 30 MG BID PO 6-8 WEEK
     Dates: start: 20081201, end: 20090130

REACTIONS (5)
  - ASTHENIA [None]
  - FATIGUE [None]
  - JAUNDICE CHOLESTATIC [None]
  - LIVER FUNCTION TEST ABNORMAL [None]
  - WEIGHT DECREASED [None]
